FAERS Safety Report 7662333-5 (Version None)
Quarter: 2011Q3

REPORT INFORMATION
  Report Type: 
  Country: None (occurrence: None)
  Receive Date: 20110805
  Receipt Date: 20101230
  Transmission Date: 20111222
  Serious: No
  Sender: FDA-Public Use
  Company Number: US-ABBOTT-10P-163-0694452-00

PATIENT
  Sex: Female
  Weight: 70.37 kg

DRUGS (5)
  1. HYDROCHLOROTHIAZIDE [Concomitant]
     Indication: PRODUCT USED FOR UNKNOWN INDICATION
  2. SINUS MEDICATION WITH ANTIHISTAMINE AND DECONGESTANT [Concomitant]
     Indication: PRODUCT USED FOR UNKNOWN INDICATION
  3. ASPIRIN [Concomitant]
     Indication: PRODUCT USED FOR UNKNOWN INDICATION
  4. NIASPAN [Suspect]
     Indication: PRODUCT USED FOR UNKNOWN INDICATION
     Dosage: NIGHTLY
     Route: 048
     Dates: start: 20101227
  5. DIOVAN [Concomitant]
     Indication: PRODUCT USED FOR UNKNOWN INDICATION

REACTIONS (6)
  - ERYTHEMA [None]
  - INSOMNIA [None]
  - PARAESTHESIA [None]
  - FLUSHING [None]
  - LIP SWELLING [None]
  - PRURITUS [None]
